FAERS Safety Report 4572684-9 (Version None)
Quarter: 2005Q1

REPORT INFORMATION
  Report Type: 
  Country: None (occurrence: None)
  Receive Date: 20050208
  Receipt Date: 20041123
  Transmission Date: 20050727
  Serious: No
  Sender: FDA-Public Use
  Company Number: US-GLAXOSMITHKLINE-A0535165A

PATIENT
  Age: 16 Year
  Sex: Male
  Weight: 68.6 kg

DRUGS (2)
  1. PAXIL CR [Suspect]
     Indication: ANXIETY DISORDER
     Dosage: 12.5MG PER DAY
     Route: 048
     Dates: start: 20040604, end: 20041001
  2. NO CONCURRENT MEDICATION [Concomitant]

REACTIONS (3)
  - ABDOMINAL DISTENSION [None]
  - DIZZINESS [None]
  - NAUSEA [None]
